APPROVED DRUG PRODUCT: MOTRIN MIGRAINE PAIN
Active Ingredient: IBUPROFEN
Strength: 200MG
Dosage Form/Route: TABLET;ORAL
Application: N019012 | Product #004
Applicant: KENVUE BRANDS LLC
Approved: Feb 25, 2000 | RLD: No | RS: No | Type: DISCN